FAERS Safety Report 7097093-2 (Version None)
Quarter: 2010Q4

REPORT INFORMATION
  Report Type: 
  Country: None (occurrence: None)
  Receive Date: 20101026
  Receipt Date: 20101021
  Transmission Date: 20110411
  Serious: Yes (Other)
  Sender: FDA-Public Use
  Company Number: 2010026693

PATIENT
  Sex: Female

DRUGS (11)
  1. VIVAGLOBIN [Suspect]
     Indication: HYPOGAMMAGLOBULINAEMIA
     Dosage: (SUBCUTANEOUS)
     Route: 058
  2. ALVESCO [Concomitant]
  3. QVAR [Concomitant]
  4. FORADIL [Concomitant]
  5. ALBUTEROL [Concomitant]
  6. AMOXCILLIN (AMOXICILLIN) [Concomitant]
  7. ASPIRIN [Concomitant]
  8. VITAMIN D [Concomitant]
  9. OCUVITE (OCUVITE /01053801/) [Concomitant]
  10. CALCIUM (CALCIUM) [Concomitant]
  11. PREVACID [Concomitant]

REACTIONS (6)
  - AMAUROSIS FUGAX [None]
  - ERYTHEMA [None]
  - INFUSION SITE URTICARIA [None]
  - PRURITUS GENERALISED [None]
  - TRANSIENT ISCHAEMIC ATTACK [None]
  - VISUAL IMPAIRMENT [None]
